FAERS Safety Report 9706011 (Version 2)
Quarter: 2014Q3

REPORT INFORMATION
  Report Type: Spontaneous
  Country: GB (occurrence: GB)
  Receive Date: 20131122
  Receipt Date: 20140711
  Transmission Date: 20150326
  Serious: Yes (Other)
  Sender: FDA-Public Use
  Company Number: GB-B.I. PHARMACEUTICALS,INC./RIDGEFIELD-2013-BI-38644YA

PATIENT
  Age: 75 Year
  Sex: Male

DRUGS (3)
  1. AMLODIPINE [Concomitant]
     Active Substance: AMLODIPINE BESYLATE
     Route: 065
  2. TAMSULOSINA [Suspect]
     Active Substance: TAMSULOSIN HYDROCHLORIDE
     Indication: PROSTATOMEGALY
     Dosage: 400 MCG
     Route: 065
  3. LEVOTHYROXINE [Concomitant]
     Active Substance: LEVOTHYROXINE
     Route: 065

REACTIONS (11)
  - Vision blurred [Not Recovered/Not Resolved]
  - Condition aggravated [Not Recovered/Not Resolved]
  - Parosmia [Not Recovered/Not Resolved]
  - Lacrimation increased [Not Recovered/Not Resolved]
  - Pruritus [Not Recovered/Not Resolved]
  - Sinus disorder [Not Recovered/Not Resolved]
  - Dizziness [Not Recovered/Not Resolved]
  - Feeling abnormal [Not Recovered/Not Resolved]
  - Drug dose omission [Unknown]
  - Lethargy [Not Recovered/Not Resolved]
  - Oropharyngeal pain [Not Recovered/Not Resolved]
